FAERS Safety Report 13472940 (Version 1)
Quarter: 2017Q2

REPORT INFORMATION
  Report Type: Spontaneous
  Country: US (occurrence: US)
  Receive Date: 20170424
  Receipt Date: 20170424
  Transmission Date: 20170830
  Serious: Yes (Hospitalization)
  Sender: FDA-Public Use
  Company Number: US-PFIZER INC-2017023985

PATIENT
  Age: 86 Year
  Sex: Female
  Weight: 61 kg

DRUGS (3)
  1. ROBITUSSIN COUGH AND CHEST CONGESTION DM MAX [Suspect]
     Active Substance: DEXTROMETHORPHAN HYDROBROMIDE\GUAIFENESIN
     Indication: COUGH
     Dosage: 16ML OR MAYBE 18ML, SINGLE
     Dates: start: 20170117, end: 20170117
  2. MUCINEX [Concomitant]
     Active Substance: GUAIFENESIN
     Dosage: UNK
  3. AMOXICILLIN. [Concomitant]
     Active Substance: AMOXICILLIN
     Indication: BRONCHITIS
     Dosage: 250 MG, 3X/DAY
     Dates: start: 20170113

REACTIONS (7)
  - Discomfort [Recovered/Resolved]
  - Throat irritation [Recovered/Resolved]
  - Thirst [Recovered/Resolved]
  - Dysgeusia [Unknown]
  - Product taste abnormal [Unknown]
  - Chest pain [Recovered/Resolved]
  - Dry mouth [Recovered/Resolved]

NARRATIVE: CASE EVENT DATE: 20170117
